FAERS Safety Report 21691698 (Version 1)
Quarter: 2022Q4

REPORT INFORMATION
  Report Type: Spontaneous
  Country: CN (occurrence: None)
  Receive Date: 20221207
  Receipt Date: 20221207
  Transmission Date: 20230113
  Serious: Yes (Other)
  Sender: FDA-Public Use
  Company Number: CN-ROCHE-3233473

PATIENT
  Age: 38 Year
  Sex: Female
  Weight: 50 kg

DRUGS (6)
  1. PERJETA [Suspect]
     Active Substance: PERTUZUMAB
     Indication: Invasive breast carcinoma
     Dosage: TCBHP REGIMEN, FIRST DOSE 840MG AND FOLLOWED DOSE 420MG
     Route: 065
  2. HERCEPTIN [Suspect]
     Active Substance: TRASTUZUMAB
     Indication: Invasive breast carcinoma
     Dosage: TCBHP REGIMEN, FIRST DOSE 8MG/KG AND FOLLOWED DOSE 6 MG/KG
     Route: 065
  3. PACLITAXEL [Concomitant]
     Active Substance: PACLITAXEL
     Indication: Invasive breast carcinoma
     Dosage: TC REGIMEN FOR 1 CYCLE, D1
     Dates: start: 20210111
  4. PACLITAXEL [Concomitant]
     Active Substance: PACLITAXEL
     Dosage: TCBHP REGIMEN
  5. CARBOPLATIN [Concomitant]
     Active Substance: CARBOPLATIN
     Indication: Invasive breast carcinoma
     Dosage: TCBHP REGIMEN
  6. CYCLOPHOSPHAMIDE [Concomitant]
     Active Substance: CYCLOPHOSPHAMIDE
     Indication: Invasive breast carcinoma
     Dosage: TC REGIMEN FOR 1 CYCLE, D1
     Dates: start: 20210111

REACTIONS (1)
  - Myelosuppression [Recovering/Resolving]

NARRATIVE: CASE EVENT DATE: 20210517
